FAERS Safety Report 20465337 (Version 1)
Quarter: 2022Q1

REPORT INFORMATION
  Report Type: Spontaneous
  Country: None (occurrence: US)
  Receive Date: 20220212
  Receipt Date: 20220212
  Transmission Date: 20220423
  Serious: Yes (Death, Hospitalization, Other)
  Sender: FDA-Public Use
  Company Number: US-Sunstar Americas Inc.-2125836

PATIENT
  Sex: Male
  Weight: 86.0 kg

DRUGS (25)
  1. PAROEX [Suspect]
     Active Substance: CHLORHEXIDINE GLUCONATE
     Indication: Pharyngitis
     Route: 002
     Dates: start: 202009, end: 20201023
  2. LIDOCAINE HCI AND EPINEPHRINE [Concomitant]
     Active Substance: EPINEPHRINE\LIDOCAINE HYDROCHLORIDE
     Dates: start: 20201006, end: 20201006
  3. LINEZOLID [Concomitant]
     Active Substance: LINEZOLID
     Dates: start: 20200929, end: 20201004
  4. MIDAZOLAM [Concomitant]
     Active Substance: MIDAZOLAM
     Dates: start: 20201003, end: 20201003
  5. METOCLOPRAMIDE [Concomitant]
     Active Substance: METOCLOPRAMIDE
     Dates: start: 20200924, end: 20200929
  6. METOLAZONE [Concomitant]
     Active Substance: METOLAZONE
     Dates: start: 20200924, end: 20200926
  7. METOPROLOL [Concomitant]
     Active Substance: METOPROLOL
     Dates: start: 20201004, end: 20201007
  8. POTASSIUM BICARBONATE [Concomitant]
     Active Substance: POTASSIUM BICARBONATE
     Dates: start: 20200919, end: 20201006
  9. ACETAZOLAMIDE [Concomitant]
     Active Substance: ACETAZOLAMIDE
     Route: 042
     Dates: start: 20200923, end: 20201006
  10. POTASSIUM CHLORIDE [Concomitant]
     Active Substance: POTASSIUM CHLORIDE
     Dates: start: 20200930, end: 20200930
  11. SODIUM CHLORIDE [Concomitant]
     Active Substance: SODIUM CHLORIDE
     Dates: start: 20200920, end: 20200925
  12. SODIUM CHLORIDE [Concomitant]
     Active Substance: SODIUM CHLORIDE
     Dates: start: 20201001, end: 20201001
  13. ACTEMRA [Concomitant]
     Active Substance: TOCILIZUMAB
     Dates: start: 20200920, end: 20200925
  14. VANCOMYCIN HYDROCHLORIDE [Concomitant]
     Active Substance: VANCOMYCIN HYDROCHLORIDE
     Dates: start: 20200926, end: 20200926
  15. FUROSEMIDE [Concomitant]
     Active Substance: FUROSEMIDE
     Dates: start: 20201007, end: 20201007
  16. HEPARIN [Concomitant]
     Active Substance: HEPARIN SODIUM
     Dates: start: 20201007, end: 20201007
  17. HYDROMORPHONE HCL [Concomitant]
     Active Substance: HYDROMORPHONE HYDROCHLORIDE
     Dates: start: 20201006, end: 20201006
  18. ALBUTEROL SULFATE [Concomitant]
     Active Substance: ALBUTEROL SULFATE
     Route: 055
     Dates: start: 20201007, end: 20201007
  19. CISATRACURIUM [Concomitant]
     Active Substance: CISATRACURIUM
     Dates: start: 20201006, end: 20201006
  20. CHLOROTHIAZIDE [Concomitant]
     Active Substance: CHLOROTHIAZIDE
     Route: 041
     Dates: start: 20200921, end: 20201003
  21. BISACODYL [Concomitant]
     Active Substance: BISACODYL
     Route: 054
     Dates: start: 20200919, end: 20200919
  22. CEFEPIME [Concomitant]
     Active Substance: CEFEPIME HYDROCHLORIDE
     Route: 048
     Dates: start: 20200926, end: 20201004
  23. CEFAZOLIN SODIUM [Concomitant]
     Active Substance: CEFAZOLIN SODIUM
     Route: 042
     Dates: start: 20201006, end: 20201006
  24. DEXTROSE [Concomitant]
     Active Substance: DEXTROSE
     Dates: start: 20200926, end: 20201004
  25. DEXTROSE [Concomitant]
     Active Substance: DEXTROSE
     Dates: start: 20200925, end: 20201006

REACTIONS (7)
  - Dyspnoea [Unknown]
  - Acute respiratory distress syndrome [Fatal]
  - Cardiac arrest [Fatal]
  - COVID-19 [Fatal]
  - Burkholderia test positive [Unknown]
  - Endotracheal intubation [Unknown]
  - Respiratory rate decreased [Unknown]

NARRATIVE: CASE EVENT DATE: 20200907
